FAERS Safety Report 7907019-4 (Version None)
Quarter: 2011Q4

REPORT INFORMATION
  Report Type: 
  Country: None (occurrence: None)
  Receive Date: 20111110
  Receipt Date: 20111104
  Transmission Date: 20120403
  Serious: Yes (Hospitalization)
  Sender: FDA-Public Use
  Company Number: US-MERCK-1111USA00712B1

PATIENT
  Age: 1 Day
  Sex: Male

DRUGS (3)
  1. FOLIC ACID [Concomitant]
     Route: 064
  2. JANUVIA [Suspect]
     Indication: POLYCYSTIC OVARIES
     Route: 064
  3. PRILOSEC [Concomitant]
     Route: 064

REACTIONS (2)
  - HYPOGLYCAEMIA [None]
  - FOETAL EXPOSURE DURING PREGNANCY [None]
